FAERS Safety Report 4609878-X (Version None)
Quarter: 2005Q1

REPORT INFORMATION
  Report Type: 
  Country: None (occurrence: None)
  Receive Date: 20050314
  Receipt Date: 20050302
  Transmission Date: 20050727
  Serious: No
  Sender: FDA-Public Use
  Company Number: 2005-126048-NL

PATIENT
  Age: 65 Year
  Sex: Female

DRUGS (10)
  1. MIRTAZAPINE [Suspect]
     Indication: DEPRESSION
     Dates: start: 20010517
  2. VENLAFAXINE HYDROCHLORIDE [Suspect]
     Dosage: 150 MG/225 MG/300 MG;
     Dates: start: 20010414, end: 20010426
  3. VENLAFAXINE HYDROCHLORIDE [Suspect]
     Dosage: 150 MG/225 MG/300 MG;
     Dates: start: 20010427, end: 20010506
  4. VENLAFAXINE HYDROCHLORIDE [Suspect]
     Dosage: 150 MG/225 MG/300 MG;
     Dates: start: 20010507, end: 20010529
  5. LORAZEPAM [Concomitant]
  6. PROTHIPENDYL HYDROCHLORIDE [Concomitant]
  7. LEVOTHYROXINE SODIUM [Concomitant]
  8. SIMVASTATIN [Concomitant]
  9. LITHIUM CARBONATE CAP [Concomitant]
  10. DELIX PLUS [Concomitant]

REACTIONS (2)
  - HYPOMANIA [None]
  - SINUS TACHYCARDIA [None]
